FAERS Safety Report 7345679-X (Version None)
Quarter: 2011Q1

REPORT INFORMATION
  Report Type: 
  Country: None (occurrence: None)
  Receive Date: 20110310
  Receipt Date: 20110302
  Transmission Date: 20110831
  Serious: Yes (Other)
  Sender: FDA-Public Use
  Company Number: B0704188A

PATIENT
  Age: 38 Year
  Sex: Female
  Weight: 58 kg

DRUGS (1)
  1. WELLBUTRIN SR [Suspect]
     Indication: MAJOR DEPRESSION
     Dosage: 300MG PER DAY
     Route: 048
     Dates: start: 20101215, end: 20110301

REACTIONS (5)
  - URINARY INCONTINENCE [None]
  - SYNCOPE [None]
  - CONFUSIONAL STATE [None]
  - EPILEPSY [None]
  - AMNESIA [None]
